FAERS Safety Report 16951161 (Version 2)
Quarter: 2020Q1

REPORT INFORMATION
  Report Type: Spontaneous
  Country: US (occurrence: US)
  Receive Date: 20191023
  Receipt Date: 20200121
  Transmission Date: 20200409
  Serious: No
  Sender: FDA-Public Use
  Company Number: US-SUN PHARMACEUTICAL INDUSTRIES LTD-2019R1-216394

PATIENT
  Sex: Male

DRUGS (6)
  1. UPTRAVI [Suspect]
     Active Substance: SELEXIPAG
     Indication: PRODUCT USED FOR UNKNOWN INDICATION
     Dosage: UNK (800 MCG)
     Route: 065
     Dates: end: 20190914
  2. REVATIO [Concomitant]
     Active Substance: SILDENAFIL CITRATE
     Indication: PRODUCT USED FOR UNKNOWN INDICATION
     Route: 065
  3. WARFARIN [Concomitant]
     Active Substance: WARFARIN
     Indication: PRODUCT USED FOR UNKNOWN INDICATION
     Dosage: UNK
     Route: 065
  4. SILDENAFIL. [Concomitant]
     Active Substance: SILDENAFIL
     Indication: PRODUCT USED FOR UNKNOWN INDICATION
     Dosage: UNK
     Route: 065
  5. AMBRISENTAN [Suspect]
     Active Substance: AMBRISENTAN
     Indication: PRODUCT USED FOR UNKNOWN INDICATION
     Dosage: 10 MILLIGRAM, QD
     Route: 048
     Dates: start: 20190522
  6. UPTRAVI [Suspect]
     Active Substance: SELEXIPAG
     Dosage: UNK (600 MCG)
     Route: 065
     Dates: end: 20190914

REACTIONS (22)
  - Abdominal discomfort [Unknown]
  - Sinus disorder [Unknown]
  - Pain in jaw [Unknown]
  - Decreased appetite [Unknown]
  - Nasopharyngitis [Unknown]
  - Neck pain [Unknown]
  - Blood iron decreased [Unknown]
  - Poor quality sleep [Unknown]
  - Abdominal distension [Unknown]
  - Drug ineffective [Unknown]
  - Dyspnoea [Unknown]
  - Discomfort [Unknown]
  - Myalgia [Unknown]
  - Chills [Unknown]
  - Nausea [Unknown]
  - Pain [Unknown]
  - Arthralgia [Unknown]
  - Diarrhoea [Unknown]
  - Fatigue [Unknown]
  - Anaemia [Unknown]
  - Condition aggravated [Unknown]
  - Malaise [Unknown]

NARRATIVE: CASE EVENT DATE: 2019
